FAERS Safety Report 12967599 (Version 7)
Quarter: 2017Q2

REPORT INFORMATION
  Report Type: Report from Study
  Country: DE (occurrence: DE)
  Receive Date: 20161123
  Receipt Date: 20170519
  Transmission Date: 20170830
  Serious: Yes (Other)
  Sender: FDA-Public Use
  Company Number: PHHY2016DE158882

PATIENT
  Age: 28 Year
  Sex: Female
  Weight: 82 kg

DRUGS (39)
  1. TAFINLAR [Suspect]
     Active Substance: DABRAFENIB MESYLATE
     Indication: METASTATIC MALIGNANT MELANOMA
     Dosage: 150 MG, BID
     Route: 048
     Dates: start: 20161110
  2. NOVALGIN [Concomitant]
     Active Substance: METAMIZOLE SODIUM
     Indication: SPINAL PAIN
     Dosage: 1 G, BID
     Route: 042
     Dates: start: 20161110, end: 20161111
  3. NOVALGIN [Concomitant]
     Active Substance: METAMIZOLE SODIUM
     Dosage: 1 G, QD
     Route: 048
     Dates: start: 20161115, end: 20161115
  4. CEFUROXIM [Concomitant]
     Active Substance: CEFUROXIME
     Indication: PYREXIA
     Dosage: 1.5 G, TID
     Route: 042
     Dates: start: 20161107, end: 20161110
  5. MOMETASONE [Concomitant]
     Active Substance: MOMETASONE
     Indication: PRODUCT USED FOR UNKNOWN INDICATION
     Dosage: 1 MG, QD
     Route: 065
     Dates: start: 20170111, end: 20170121
  6. IBUPROFEN. [Concomitant]
     Active Substance: IBUPROFEN
     Indication: PRODUCT USED FOR UNKNOWN INDICATION
     Dosage: 800 MG, QD
     Route: 048
     Dates: start: 20170324
  7. PCM [Concomitant]
     Indication: PRODUCT USED FOR UNKNOWN INDICATION
     Dosage: 500 MG, 6QD
     Route: 048
     Dates: start: 20170213, end: 20170215
  8. CHLORINE [Concomitant]
     Active Substance: CHLORINE
     Indication: PRODUCT USED FOR UNKNOWN INDICATION
     Route: 065
  9. TRAMETINIB [Suspect]
     Active Substance: TRAMETINIB
     Indication: BRAF GENE MUTATION
     Dosage: 1.5 MG, QD
     Route: 048
     Dates: start: 20161121
  10. RINGER [Concomitant]
     Indication: PRODUCT USED FOR UNKNOWN INDICATION
     Dosage: 500 MG, QD
     Route: 042
     Dates: start: 20161110, end: 20161115
  11. METRONIDAZOL [Concomitant]
     Active Substance: METRONIDAZOLE
     Indication: PYREXIA
     Dosage: 500 MG, BID
     Route: 042
     Dates: start: 20161107, end: 20161110
  12. BETAMETHASONE. [Concomitant]
     Active Substance: BETAMETHASONE
     Indication: PRODUCT USED FOR UNKNOWN INDICATION
     Dosage: 1 MG, QD
     Route: 061
     Dates: start: 20161124, end: 20161128
  13. TAFINLAR [Suspect]
     Active Substance: DABRAFENIB MESYLATE
     Indication: BRAF GENE MUTATION
     Dosage: 150 MG, BID
     Route: 048
     Dates: start: 20161111, end: 20161116
  14. PALLADON [Concomitant]
     Active Substance: HYDROMORPHONE
     Dosage: 1.3 MG, QD
     Route: 048
     Dates: start: 20161111, end: 20161113
  15. PARACETAMOL [Concomitant]
     Active Substance: ACETAMINOPHEN
     Dosage: 500 MG, QD
     Route: 048
     Dates: start: 20170117, end: 20170117
  16. NOVALGIN [Concomitant]
     Active Substance: METAMIZOLE SODIUM
     Dosage: 1 G, QID
     Route: 042
     Dates: start: 20161112, end: 20161114
  17. MOVICOL [Concomitant]
     Active Substance: POLYETHYLENE GLYCOL 3350\POTASSIUM CHLORIDE\SODIUM BICARBONATE\SODIUM CHLORIDE
     Indication: CONSTIPATION
     Dosage: 13.81 G, QD
     Route: 048
     Dates: start: 20161108, end: 20161127
  18. BETAMETHASONE. [Concomitant]
     Active Substance: BETAMETHASONE
     Dosage: 1 MG, QD
     Route: 061
     Dates: start: 20170121, end: 20170124
  19. PCM [Concomitant]
     Dosage: 500 MG, BID
     Route: 048
     Dates: start: 20170216, end: 20170217
  20. TAFINLAR [Suspect]
     Active Substance: DABRAFENIB MESYLATE
     Dosage: 150 MG, BID
     Route: 048
     Dates: start: 20161121
  21. NOVALGIN [Concomitant]
     Active Substance: METAMIZOLE SODIUM
     Dosage: 1 G, TID
     Route: 042
     Dates: start: 20161115, end: 20161115
  22. VITAMIN C [Concomitant]
     Active Substance: ASCORBIC ACID
     Indication: PRODUCT USED FOR UNKNOWN INDICATION
     Dosage: 6 DF, QD
     Route: 048
     Dates: start: 20161214, end: 20161220
  23. VOMEX A [Concomitant]
     Active Substance: DIMENHYDRINATE
     Indication: NAUSEA
     Dosage: 62 MG, QD
     Route: 042
     Dates: start: 20161110, end: 20161110
  24. PALLADON [Concomitant]
     Active Substance: HYDROMORPHONE
     Indication: SPINAL PAIN
     Dosage: 1.3 MG, BID
     Route: 048
     Dates: start: 20161110, end: 20161110
  25. PALLADON [Concomitant]
     Active Substance: HYDROMORPHONE
     Dosage: 4 MG, BID
     Route: 048
     Dates: start: 20161108, end: 20161127
  26. PARACETAMOL [Concomitant]
     Active Substance: ACETAMINOPHEN
     Dosage: 5 UNK, QD
     Route: 048
     Dates: start: 20161215, end: 20161216
  27. NOVALGIN [Concomitant]
     Active Substance: METAMIZOLE SODIUM
     Dosage: 1 G, QD
     Route: 048
     Dates: start: 20170118, end: 20170118
  28. PREDNICARBATE. [Concomitant]
     Active Substance: PREDNICARBATE
     Indication: PRODUCT USED FOR UNKNOWN INDICATION
     Dosage: 2.5 MG, QD
     Route: 061
     Dates: start: 20170109, end: 20170331
  29. PCM [Concomitant]
     Dosage: 2 G (4X500 MG) QD
     Route: 048
     Dates: start: 20170224, end: 20170225
  30. APIDRA [Concomitant]
     Active Substance: INSULIN GLULISINE
     Indication: TYPE 1 DIABETES MELLITUS
     Dosage: 29.5 IU, QD
     Route: 058
     Dates: start: 20060101
  31. PARACETAMOL [Concomitant]
     Active Substance: ACETAMINOPHEN
     Indication: SPINAL PAIN
     Dosage: 1 G, QD
     Route: 042
     Dates: start: 20161110, end: 20161110
  32. PARACETAMOL [Concomitant]
     Active Substance: ACETAMINOPHEN
     Dosage: 6 DF, QD
     Route: 048
     Dates: start: 20170213, end: 20170215
  33. PARACETAMOL [Concomitant]
     Active Substance: ACETAMINOPHEN
     Dosage: 4 DF, UNK
     Route: 048
     Dates: start: 20170224
  34. TRAMETINIB [Suspect]
     Active Substance: TRAMETINIB
     Indication: METASTATIC MALIGNANT MELANOMA
     Dosage: 2 MG, QD
     Route: 048
     Dates: start: 20161111, end: 20161116
  35. PARACETAMOL [Concomitant]
     Active Substance: ACETAMINOPHEN
     Dosage: 2 DF, QD
     Route: 048
     Dates: start: 20170216, end: 20170217
  36. NOVALGIN [Concomitant]
     Active Substance: METAMIZOLE SODIUM
     Dosage: 1 G, 5QD
     Route: 042
     Dates: start: 20161111, end: 20161111
  37. NOVALGIN [Concomitant]
     Active Substance: METAMIZOLE SODIUM
     Dosage: 1 G, QID
     Route: 048
     Dates: start: 20161116, end: 20161128
  38. NOVAMINSULFON [Concomitant]
     Active Substance: METAMIZOLE
     Indication: PRODUCT USED FOR UNKNOWN INDICATION
     Dosage: 500 MG, 6QD
     Route: 048
     Dates: start: 20161125, end: 20170427
  39. ASPIRIN. [Concomitant]
     Active Substance: ASPIRIN
     Indication: PRODUCT USED FOR UNKNOWN INDICATION
     Dosage: 400 MG, QD
     Route: 048
     Dates: start: 20161214, end: 20161218

REACTIONS (30)
  - Myalgia [Recovered/Resolved]
  - Nervousness [Not Recovered/Not Resolved]
  - Erythema nodosum [Recovered/Resolved]
  - Blood creatine phosphokinase increased [Not Recovered/Not Resolved]
  - Viral upper respiratory tract infection [Recovered/Resolved]
  - Condition aggravated [Recovered/Resolved]
  - Pyrexia [Recovered/Resolved]
  - Bone pain [Recovered/Resolved]
  - Hepatic pain [Recovered/Resolved]
  - Decreased appetite [Recovered/Resolved]
  - Eczema [Recovered/Resolved]
  - Tenderness [Not Recovered/Not Resolved]
  - Macular oedema [Recovered/Resolved]
  - Diarrhoea [Recovered/Resolved]
  - Skin texture abnormal [Not Recovered/Not Resolved]
  - Hair texture abnormal [Not Recovered/Not Resolved]
  - Chills [Recovered/Resolved]
  - Vision blurred [Unknown]
  - Erythema nodosum [Recovered/Resolved]
  - Alopecia [Not Recovered/Not Resolved]
  - Pyrexia [Recovered/Resolved]
  - Abdominal pain upper [Recovered/Resolved]
  - Pain in extremity [Recovered/Resolved]
  - Faeces discoloured [Recovered/Resolved]
  - Erythema nodosum [Recovered/Resolved]
  - Rash pustular [Recovered/Resolved]
  - Pain in extremity [Recovered/Resolved]
  - Nausea [Not Recovered/Not Resolved]
  - Constipation [Recovered/Resolved]
  - Pharyngitis [Recovered/Resolved]

NARRATIVE: CASE EVENT DATE: 20161114
